FAERS Safety Report 20176603 (Version 1)
Quarter: 2021Q4

REPORT INFORMATION
  Report Type: Spontaneous
  Country: US (occurrence: None)
  Receive Date: 20211209
  Receipt Date: 20211209
  Transmission Date: 20220303
  Serious: Yes (Death, Other)
  Sender: FDA-Public Use
  Company Number: None

PATIENT
  Age: 70 Year
  Sex: Male

DRUGS (1)
  1. IVERMECTIN [Suspect]
     Active Substance: IVERMECTIN

REACTIONS (21)
  - Atrial fibrillation [None]
  - Atrial flutter [None]
  - Hypertension [None]
  - Hypotension [None]
  - Tachycardia [None]
  - Diarrhoea [None]
  - Acidosis [None]
  - Rhabdomyolysis [None]
  - Agitation [None]
  - Ataxia [None]
  - Confusional state [None]
  - Dizziness [None]
  - Muscular weakness [None]
  - Hyperventilation [None]
  - Tachypnoea [None]
  - Mental status changes [None]
  - Delirium [None]
  - Intentional overdose [None]
  - Drug abuse [None]
  - Gastrointestinal disorder [None]
  - Back pain [None]
